FAERS Safety Report 8623035-1 (Version None)
Quarter: 2012Q3

REPORT INFORMATION
  Report Type: 
  Country: None (occurrence: None)
  Receive Date: 20120810
  Receipt Date: 20120727
  Transmission Date: 20120928
  Serious: Yes (Other)
  Sender: FDA-Public Use
  Company Number: DSJ-2012-13593

PATIENT
  Age: 78 Year
  Sex: Male
  Weight: 60 kg

DRUGS (6)
  1. OLMESARTAN MEDOXOMIL [Suspect]
     Indication: ESSENTIAL HYPERTENSION
     Dosage: 20 MG, PER ORAL
     Route: 048
     Dates: start: 20100227, end: 20111025
  2. NESINA [Concomitant]
  3. AMLODIPINE [Suspect]
     Dosage: 5 MG,
     Dates: end: 20110916
  4. GLYBURIDE [Concomitant]
  5. METGLUCO (METFORMIN HYDROCHLORIDE) [Concomitant]
  6. DIOVAN [Concomitant]

REACTIONS (2)
  - LYMPHOCYTE STIMULATION TEST POSITIVE [None]
  - DERMATITIS ALLERGIC [None]
